FAERS Safety Report 18318530 (Version 1)
Quarter: 2020Q3

REPORT INFORMATION
  Report Type: Spontaneous
  Country: DE (occurrence: DE)
  Receive Date: 20200928
  Receipt Date: 20200928
  Transmission Date: 20201103
  Serious: Yes (Life-Threatening, Hospitalization)
  Sender: FDA-Public Use
  Company Number: DE-TEVA-2020-DE-1830681

PATIENT
  Age: 59 Year
  Sex: Female

DRUGS (21)
  1. DOCITON 10MG [Concomitant]
     Dosage: 7.5 DOSAGE FORMS DAILY; 10 MG, 2.5?2.5?0?2.5
  2. FRISIUM 10MG [Concomitant]
     Dosage: .5 DOSAGE FORMS DAILY; 10 MG, 0?0?0.5?0
  3. ASTONIN 0,1MG [Concomitant]
     Dosage: .1 MILLIGRAM DAILY; 1?0?0?0
  4. CLEXANE [Concomitant]
     Active Substance: ENOXAPARIN SODIUM
     Dosage: 80 MILLIGRAM DAILY; 0?0?1?0
     Route: 058
  5. VITAMIN B12 [Concomitant]
     Active Substance: CYANOCOBALAMIN
     Dosage: 2 DOSAGE FORMS DAILY; NK MG, 1?0?1?0, UNIT DOSE : 1 DOSAGE FORMS
  6. HYDROCORTISON [Suspect]
     Active Substance: HYDROCORTISONE
     Dosage: 60 MILLIGRAM DAILY; 1?0?0?0
  7. HYDROCORTISON [Suspect]
     Active Substance: HYDROCORTISONE
     Dosage: 40 MILLIGRAM DAILY; 0?1?0?0
  8. RAMIPRIL. [Suspect]
     Active Substance: RAMIPRIL
     Dosage: 2.5 MILLIGRAM DAILY; 1?0?0?0
  9. SIMETHICONE (DIMETHICONE) [Concomitant]
     Active Substance: DIMETHICONE
     Dosage: 20 ML DAILY; UNIT DOSE : 5 ML, 1?1?1?1
  10. SPIRONOLACTON [Suspect]
     Active Substance: SPIRONOLACTONE
     Dosage: 200 MILLIGRAM DAILY; UNIT DOSE : 100 MG, 1?0?1?0
  11. KALINOR?RETARD P 600MG [Concomitant]
     Dosage: 600 MG, 1?2?1?0
  12. ARANESP [Concomitant]
     Active Substance: DARBEPOETIN ALFA
     Dosage: UNIT DOSE : 80 MICROGRAM, THURSDAY
  13. TORASEMID [Suspect]
     Active Substance: TORSEMIDE
     Dosage: 40 MILLIGRAM DAILY; UNIT DOSE : 20 MG, 1?1?0?0
  14. LEVOTHYROXIN?NATRIUM [Concomitant]
     Active Substance: LEVOTHYROXINE SODIUM
     Dosage: 225 MICROGRAM DAILY; 1?0?0?0
  15. ZONISAMID [Concomitant]
     Active Substance: ZONISAMIDE
     Dosage: UNIT DOSE : 100 MG, 1?0?2?0
  16. BICANORM [Concomitant]
     Active Substance: SODIUM BICARBONATE
     Dosage: 6 GRAM DAILY; UNIT DOSE : 2 G, 1?1?1?0
  17. FYCOMPA [Concomitant]
     Active Substance: PERAMPANEL
     Dosage: 2 MILLIGRAM DAILY; 1?0?0?0
  18. PANTOPRAZOL [Concomitant]
     Active Substance: PANTOPRAZOLE SODIUM
     Dosage: 40 MILLIGRAM DAILY; 0?0?1?0
  19. LAMOTRIGIN [Concomitant]
     Active Substance: LAMOTRIGINE
     Dosage: 100 MG, 1.5?0?1.25?0
  20. BRIVARACETAM [Concomitant]
     Active Substance: BRIVARACETAM
     Dosage: 200 MILLIGRAM DAILY; UNIT DOSE : 100 MG, 1?0?1?0
  21. MELPERON [Concomitant]
     Active Substance: MELPERONE
     Dosage: 25 MILLIGRAM DAILY; 0?0?0?1, JUICE

REACTIONS (4)
  - General physical health deterioration [Recovering/Resolving]
  - Hyperglycaemia [Recovering/Resolving]
  - Condition aggravated [Recovering/Resolving]
  - Depressed level of consciousness [Recovering/Resolving]
